FAERS Safety Report 11981928 (Version 1)
Quarter: 2016Q1

REPORT INFORMATION
  Report Type: Spontaneous
  Country: US (occurrence: None)
  Receive Date: 20160129
  Receipt Date: 20160129
  Transmission Date: 20160526
  Serious: Yes (Hospitalization)
  Sender: FDA-Public Use
  Company Number: None

PATIENT
  Age: 52 Year
  Sex: Female
  Weight: 54.43 kg

DRUGS (3)
  1. CARDIOLITE [Suspect]
     Active Substance: TECHNETIUM TC-99M SESTAMIBI
     Indication: HEPATOBILIARY SCAN
     Route: 042
     Dates: start: 20160120, end: 20160120
  2. CARVEDILOL. [Concomitant]
     Active Substance: CARVEDILOL
  3. VITAMIN D [Concomitant]
     Active Substance: CHOLECALCIFEROL

REACTIONS (9)
  - Back pain [None]
  - Chest pain [None]
  - Oesophageal pain [None]
  - Wrong drug administered [None]
  - Burning sensation [None]
  - Gastrooesophageal reflux disease [None]
  - Contrast media reaction [None]
  - Painful defaecation [None]
  - Anxiety [None]

NARRATIVE: CASE EVENT DATE: 20160120
